FAERS Safety Report 7269660-4 (Version None)
Quarter: 2011Q1

REPORT INFORMATION
  Report Type: 
  Country: None (occurrence: None)
  Receive Date: 20110124
  Receipt Date: 20110110
  Transmission Date: 20110831
  Serious: No
  Sender: FDA-Public Use
  Company Number: 2011-00006

PATIENT
  Age: 55 Year
  Sex: Female
  Weight: 58.514 kg

DRUGS (4)
  1. CLARITIN [Concomitant]
  2. TAMOXIFEN CITRATE [Concomitant]
  3. ZICAM COLD REMEDY ORAL MIST [Suspect]
     Dosage: 6 HOURS APART, 2 DOSES
     Dates: start: 20110107, end: 20110107
  4. SYNTHROID [Concomitant]

REACTIONS (1)
  - AGEUSIA [None]
